FAERS Safety Report 9361237 (Version 2)
Quarter: 2013Q3

REPORT INFORMATION
  Report Type: Spontaneous
  Country: CA (occurrence: CA)
  Receive Date: 20130621
  Receipt Date: 20130819
  Transmission Date: 20140515
  Serious: Yes (Other)
  Sender: FDA-Public Use
  Company Number: CA-BRISTOL-MYERS SQUIBB COMPANY-19025568

PATIENT
  Age: 75 Year
  Sex: Male

DRUGS (7)
  1. ELIQUIS [Suspect]
     Indication: ATRIAL FIBRILLATION
     Route: 048
     Dates: start: 20130426
  2. ACETYLSALICYLIC ACID [Suspect]
  3. BISOPROLOL [Concomitant]
  4. LIPITOR [Concomitant]
  5. PANTOLOC [Concomitant]
  6. AMIODARONE [Concomitant]
  7. PLAVIX [Concomitant]

REACTIONS (1)
  - Ischaemic stroke [Recovered/Resolved]
